FAERS Safety Report 7398844-X (Version None)
Quarter: 2011Q2

REPORT INFORMATION
  Report Type: 
  Country: None (occurrence: None)
  Receive Date: 20110404
  Receipt Date: 20110404
  Transmission Date: 20111010
  Serious: Yes (Hospitalization)
  Sender: FDA-Public Use
  Company Number: None

PATIENT
  Age: 83 Year
  Sex: Female

DRUGS (1)
  1. VENOFER [Suspect]
     Indication: ANAEMIA
     Dosage: 500MG/250MG NS OVER 3 HOURS

REACTIONS (4)
  - DIZZINESS [None]
  - HYPERTENSION [None]
  - PALLOR [None]
  - NAUSEA [None]
